FAERS Safety Report 9154747 (Version 1)
Quarter: 2013Q1

REPORT INFORMATION
  Report Type: Spontaneous
  Country: US (occurrence: None)
  Receive Date: 20130308
  Receipt Date: 20130308
  Transmission Date: 20140127
  Serious: Yes (Other)
  Sender: FDA-Public Use
  Company Number: None

PATIENT
  Sex: Female
  Weight: 49.9 kg

DRUGS (2)
  1. VYTORIN [Suspect]
     Indication: BLOOD CHOLESTEROL
     Dosage: 10/20 MG 1XDAY 1390435
     Dates: start: 20130127
  2. NORTRIPTYLINE [Suspect]
     Dosage: 10 MG/5 MG SOLN
     Dates: start: 20121102

REACTIONS (1)
  - Alopecia [None]
